FAERS Safety Report 14730591 (Version 7)
Quarter: 2018Q4

REPORT INFORMATION
  Report Type: Spontaneous
  Country: FR (occurrence: FR)
  Receive Date: 20180406
  Receipt Date: 20181023
  Transmission Date: 20190204
  Serious: Yes (Hospitalization, Other)
  Sender: FDA-Public Use
  Company Number: PHHY2018FR060295

PATIENT
  Age: 63 Year
  Sex: Female
  Weight: 45 kg

DRUGS (6)
  1. AFINITOR [Suspect]
     Active Substance: EVEROLIMUS
     Indication: PANCREATIC NEUROENDOCRINE TUMOUR
     Dosage: 5 MG, QD
     Route: 065
     Dates: start: 20170322, end: 20171012
  2. FLUOROURACIL. [Suspect]
     Active Substance: FLUOROURACIL
     Dosage: 3600 MG (2400 MG/M2), CYCLIC, EVERY 14 DAYS
     Route: 065
     Dates: start: 20171012, end: 20180301
  3. OXALIPLATIN. [Suspect]
     Active Substance: OXALIPLATIN
     Indication: PRODUCT USED FOR UNKNOWN INDICATION
     Dosage: 130 MG, CYCLIC (85 MG/M2 EVERY 14 DAYS)
     Route: 065
     Dates: start: 20171012, end: 20180301
  4. OCTREOTIDE. [Suspect]
     Active Substance: OCTREOTIDE
     Indication: PANCREATIC NEUROENDOCRINE TUMOUR
     Dosage: 30 MG, CYCLIC (EVERY 15 DAYS)
     Route: 065
     Dates: start: 20170322
  5. ELOXATIN [Suspect]
     Active Substance: OXALIPLATIN
     Indication: PANCREATIC NEUROENDOCRINE TUMOUR
     Dosage: 130 MG (85 MG/M2), CYCLIC, EVERY 14 DAYS
     Route: 065
     Dates: start: 20171012, end: 20180301
  6. FLUOROURACIL. [Suspect]
     Active Substance: FLUOROURACIL
     Indication: PRODUCT USED FOR UNKNOWN INDICATION
     Dosage: 4190 MG, CYCLIC (EVERY 14 DAYS)
     Route: 065
     Dates: start: 20171012

REACTIONS (12)
  - Subileus [Recovered/Resolved]
  - Dysgeusia [Not Recovered/Not Resolved]
  - Paraesthesia [Recovered/Resolved]
  - Enterobacter sepsis [Recovered/Resolved]
  - Neutropenia [Recovered/Resolved]
  - Chest pain [Recovered/Resolved]
  - Paraesthesia [Recovered/Resolved]
  - Enterobacter sepsis [Recovered/Resolved]
  - Nausea [Recovered/Resolved]
  - Anaemia [Recovered/Resolved]
  - Decreased appetite [Recovering/Resolving]
  - Intestinal obstruction [Recovered/Resolved]

NARRATIVE: CASE EVENT DATE: 201710
